FAERS Safety Report 16681327 (Version 2)
Quarter: 2024Q2

REPORT INFORMATION
  Report Type: Spontaneous
  Country: FR (occurrence: FR)
  Receive Date: 20190808
  Receipt Date: 20240501
  Transmission Date: 20240716
  Serious: Yes (Hospitalization)
  Sender: FDA-Public Use
  Company Number: FR-AUROBINDO-AUR-APL-2019-046149

PATIENT
  Age: 95 Year
  Sex: Female
  Weight: 52 kg

DRUGS (6)
  1. BISOPROLOL [Suspect]
     Active Substance: BISOPROLOL\BISOPROLOL FUMARATE
     Indication: Hypertension
     Dosage: 6.25 MILLIGRAM, ONCE A DAY
     Route: 048
  2. PAROXETINE [Suspect]
     Active Substance: PAROXETINE
     Indication: Mixed anxiety and depressive disorder
     Dosage: 10 MILLIGRAM, ONCE A DAY
     Route: 048
     Dates: end: 20181105
  3. PAROXETINE [Suspect]
     Active Substance: PAROXETINE
     Indication: Hypertension
  4. LISINOPRIL [Suspect]
     Active Substance: LISINOPRIL
     Indication: Hypertension
     Dosage: 20 MILLIGRAM, ONCE A DAY
     Route: 048
     Dates: end: 20181107
  5. BROMAZEPAM [Suspect]
     Active Substance: BROMAZEPAM
     Indication: Insomnia
     Dosage: 6 MILLIGRAM
     Route: 048
     Dates: end: 20181105
  6. BROMAZEPAM [Suspect]
     Active Substance: BROMAZEPAM
     Indication: Hypertension

REACTIONS (2)
  - Fall [Recovered/Resolved]
  - Vertigo [Recovered/Resolved]

NARRATIVE: CASE EVENT DATE: 20181101
